FAERS Safety Report 20128963 (Version 1)
Quarter: 2021Q4

REPORT INFORMATION
  Report Type: Spontaneous
  Country: SE (occurrence: SE)
  Receive Date: 20211130
  Receipt Date: 20211130
  Transmission Date: 20220303
  Serious: Yes (Disabling)
  Sender: FDA-Public Use
  Company Number: SE-ABBVIE-21K-150-4178496-00

PATIENT
  Sex: Male
  Weight: 68 kg

DRUGS (3)
  1. VALPROIC ACID [Suspect]
     Active Substance: VALPROIC ACID
     Indication: Epilepsy
     Dosage: 1-3 TIMES PER DAY
     Route: 065
     Dates: start: 19981226, end: 20070819
  2. VALPROIC ACID [Suspect]
     Active Substance: VALPROIC ACID
     Dosage: 1-3 TIMES PER DAY
     Route: 065
     Dates: start: 19981226, end: 20070819
  3. VALPROIC ACID [Suspect]
     Active Substance: VALPROIC ACID
     Dosage: 1-3 TIMES PER DAY
     Route: 065
     Dates: start: 19981226, end: 20070819

REACTIONS (3)
  - Orchitis [Not Recovered/Not Resolved]
  - Azoospermia [Not Recovered/Not Resolved]
  - Infertility [Not Recovered/Not Resolved]
